FAERS Safety Report 7487475-9 (Version None)
Quarter: 2011Q2

REPORT INFORMATION
  Report Type: 
  Country: None (occurrence: None)
  Receive Date: 20110518
  Receipt Date: 20110509
  Transmission Date: 20111010
  Serious: Yes (Hospitalization)
  Sender: FDA-Public Use
  Company Number: US-ASTRAZENECA-2011SE27423

PATIENT
  Sex: Female

DRUGS (5)
  1. VENLAFAXINE HCL [Suspect]
     Route: 065
  2. DITROPAN [Suspect]
     Route: 065
  3. OXYBUTYNIN CHLORIDE [Suspect]
     Route: 065
  4. SEROQUEL [Suspect]
     Route: 048
  5. EFFEXOR XR [Suspect]
     Route: 065

REACTIONS (5)
  - POLLAKIURIA [None]
  - BLADDER OPERATION [None]
  - UNEVALUABLE EVENT [None]
  - GASTROOESOPHAGEAL REFLUX DISEASE [None]
  - HYPERHIDROSIS [None]
